FAERS Safety Report 9308282 (Version 1)
Quarter: 2013Q2

REPORT INFORMATION
  Report Type: Spontaneous
  Country: US (occurrence: US)
  Receive Date: 20130524
  Receipt Date: 20130524
  Transmission Date: 20140414
  Serious: Yes (Hospitalization, Other)
  Sender: FDA-Public Use
  Company Number: US-TEVA-406962USA

PATIENT
  Age: 49 Year
  Sex: Female

DRUGS (1)
  1. TAMOXIFEN [Suspect]
     Indication: BREAST CANCER
     Route: 048

REACTIONS (3)
  - Pulmonary embolism [Unknown]
  - Pulmonary hypertension [Unknown]
  - Congestive cardiomyopathy [Unknown]
